FAERS Safety Report 15629973 (Version 1)
Quarter: 2018Q4

REPORT INFORMATION
  Report Type: Spontaneous
  Country: US (occurrence: US)
  Receive Date: 20181117
  Receipt Date: 20181117
  Transmission Date: 20190205
  Serious: No
  Sender: FDA-Public Use
  Company Number: US-009507513-1811USA001677

PATIENT
  Age: 69 Year
  Sex: Female

DRUGS (4)
  1. SUCRALFATE. [Concomitant]
     Active Substance: SUCRALFATE
  2. LISINOPRIL. [Concomitant]
     Active Substance: LISINOPRIL
  3. ASPIRIN. [Concomitant]
     Active Substance: ASPIRIN
  4. JANUVIA [Suspect]
     Active Substance: SITAGLIPTIN PHOSPHATE
     Indication: BLOOD GLUCOSE INCREASED
     Dosage: UNK
     Route: 048
     Dates: start: 20180705, end: 20180710

REACTIONS (6)
  - Vaginal discharge [Not Recovered/Not Resolved]
  - Skin exfoliation [Not Recovered/Not Resolved]
  - Vulvovaginal dryness [Not Recovered/Not Resolved]
  - Electric shock [Not Recovered/Not Resolved]
  - Vulvovaginal discomfort [Not Recovered/Not Resolved]
  - Vulvovaginal burning sensation [Not Recovered/Not Resolved]

NARRATIVE: CASE EVENT DATE: 20180710
